FAERS Safety Report 14436430 (Version 2)
Quarter: 2018Q1

REPORT INFORMATION
  Report Type: Spontaneous
  Country: IL (occurrence: IL)
  Receive Date: 20180125
  Receipt Date: 20180226
  Transmission Date: 20180509
  Serious: Yes (Other)
  Sender: FDA-Public Use
  Company Number: IL-ROCHE-2024106

PATIENT
  Age: 13 Year
  Sex: Male

DRUGS (4)
  1. ACTEMRA [Suspect]
     Active Substance: TOCILIZUMAB
     Indication: JUVENILE IDIOPATHIC ARTHRITIS
     Route: 065
     Dates: start: 201711
  2. PREDNISONE. [Concomitant]
     Active Substance: PREDNISONE
     Indication: JUVENILE IDIOPATHIC ARTHRITIS
     Route: 065
  3. METHOTREXATE. [Concomitant]
     Active Substance: METHOTREXATE
     Indication: JUVENILE IDIOPATHIC ARTHRITIS
     Route: 065
  4. COLCHICINE. [Concomitant]
     Active Substance: COLCHICINE
     Indication: JUVENILE IDIOPATHIC ARTHRITIS
     Route: 065

REACTIONS (10)
  - Colitis [Unknown]
  - Gastroduodenal ulcer [Unknown]
  - Rash pustular [Recovered/Resolved]
  - Abdominal pain [Unknown]
  - Diarrhoea [Unknown]
  - Arthritis [Unknown]
  - Juvenile idiopathic arthritis [Unknown]
  - Inflammatory bowel disease [Unknown]
  - Arthralgia [Unknown]
  - Myalgia [Unknown]
